FAERS Safety Report 5393026-5 (Version None)
Quarter: 2007Q3

REPORT INFORMATION
  Report Type: 
  Country: None (occurrence: None)
  Receive Date: 20070719
  Receipt Date: 20070709
  Transmission Date: 20080115
  Serious: Yes (Other)
  Sender: FDA-Public Use
  Company Number: 2007-01969

PATIENT
  Age: 51 Year
  Sex: Male

DRUGS (2)
  1. VELCADE [Suspect]
     Indication: MULTIPLE MYELOMA
     Dates: start: 20060401
  2. ZOMETA [Concomitant]

REACTIONS (4)
  - ALPHA TUMOUR NECROSIS FACTOR INCREASED [None]
  - INTERLEUKIN LEVEL INCREASED [None]
  - PULMONARY ALVEOLAR HAEMORRHAGE [None]
  - PULMONARY VASCULITIS [None]
